FAERS Safety Report 10463864 (Version 1)
Quarter: 2014Q3

REPORT INFORMATION
  Report Type: Spontaneous
  Country: US (occurrence: None)
  Receive Date: 20140918
  Receipt Date: 20140918
  Transmission Date: 20150326
  Serious: Yes (Hospitalization)
  Sender: FDA-Public Use
  Company Number: None

PATIENT
  Age: 17 Year
  Sex: Male
  Weight: 47.3 kg

DRUGS (22)
  1. CIPROFLOXACIN. [Concomitant]
     Active Substance: CIPROFLOXACIN
  2. DORNASE ALFA (PULMOZYME) [Concomitant]
  3. IPRATROPIUM [Concomitant]
     Active Substance: IPRATROPIUM
  4. INTRALIPIDS [Concomitant]
  5. PANCRELIPASE [Concomitant]
     Active Substance: PANCRELIPASE
  6. CLOFAZIMINE [Concomitant]
     Active Substance: CLOFAZIMINE
  7. CLOFAZIMINE [Suspect]
     Active Substance: CLOFAZIMINE
     Indication: MYCOBACTERIUM ABSCESSUS INFECTION
     Dosage: 2 CAPSULES QD ORAL?INDEFINITELY
     Route: 048
  8. MULTIVITAMINS WITH MINERALS [Concomitant]
     Active Substance: MINERALS\VITAMINS
  9. AZITHROMYCIN [Concomitant]
     Active Substance: AZITHROMYCIN ANHYDROUS
  10. FLUCONAZOLE. [Concomitant]
     Active Substance: FLUCONAZOLE
  11. METHYLPREDNISOLONE [Concomitant]
     Active Substance: METHYLPREDNISOLONE
  12. ONDANSETRON [Concomitant]
     Active Substance: ONDANSETRON
  13. CLOFAZIMINE [Suspect]
     Active Substance: CLOFAZIMINE
     Indication: MYCOBACTERIUM CHELONAE INFECTION
     Dosage: 2 CAPSULES QD ORAL?INDEFINITELY
     Route: 048
  14. FLUTICASONE (FLONASE) [Concomitant]
  15. HYPERTONIC SALINE 7% INHALATION SOLUTION [Concomitant]
  16. ALBUTEROL. [Concomitant]
     Active Substance: ALBUTEROL
  17. AMIKACIN [Concomitant]
     Active Substance: AMIKACIN
  18. SODIUM CHLORIDE. [Concomitant]
     Active Substance: SODIUM CHLORIDE
  19. ACETAMINOPHEN. [Concomitant]
     Active Substance: ACETAMINOPHEN
  20. IMIPENEM-CILASTATIN [Concomitant]
  21. LORATADINE. [Concomitant]
     Active Substance: LORATADINE
  22. PANTOPRAZOLE [Concomitant]
     Active Substance: PANTOPRAZOLE SODIUM

REACTIONS (2)
  - Respiratory distress [None]
  - Pyrexia [None]

NARRATIVE: CASE EVENT DATE: 20140914
